FAERS Safety Report 11816082 (Version 2)
Quarter: 2015Q4

REPORT INFORMATION
  Report Type: Report from Study
  Country: US (occurrence: US)
  Receive Date: 20151209
  Receipt Date: 20151225
  Transmission Date: 20160305
  Serious: No
  Sender: FDA-Public Use
  Company Number: US-AMGEN-USASP2015127529

PATIENT
  Age: 46 Year
  Sex: Female

DRUGS (1)
  1. ENBREL [Suspect]
     Active Substance: ETANERCEPT
     Indication: RHEUMATOID ARTHRITIS
     Dosage: 50 MG, QWK
     Route: 065
     Dates: start: 20151128, end: 20151204

REACTIONS (4)
  - Sleep disorder [Not Recovered/Not Resolved]
  - Device difficult to use [Unknown]
  - Headache [Unknown]
  - Device issue [Unknown]

NARRATIVE: CASE EVENT DATE: 20151128
